FAERS Safety Report 4629042-8 (Version None)
Quarter: 2005Q2

REPORT INFORMATION
  Report Type: 
  Country: None (occurrence: None)
  Receive Date: 20050407
  Receipt Date: 20050328
  Transmission Date: 20051028
  Serious: Yes (Hospitalization)
  Sender: FDA-Public Use
  Company Number: US-SOLVAY-00205000974

PATIENT
  Age: 429 Month
  Sex: Female
  Weight: 100 kg

DRUGS (3)
  1. CREON [Suspect]
     Indication: CROHN'S DISEASE
     Dosage: DAILY DOSE: 180 KIU(1000S)
     Route: 048
     Dates: start: 20050201, end: 20050201
  2. CREON [Suspect]
     Dosage: DAILY DOSE: 180 DOSAGE FORM
     Route: 048
     Dates: start: 20050201, end: 20050201
  3. CREON [Suspect]
     Dosage: DAILY DOSE: 180 DOSAGE FORM
     Route: 048
     Dates: start: 20050201, end: 20050201

REACTIONS (5)
  - BLOOD PRESSURE DECREASED [None]
  - DEHYDRATION [None]
  - DIARRHOEA [None]
  - VOMITING [None]
  - WHITE BLOOD CELL COUNT INCREASED [None]
